FAERS Safety Report 21104528 (Version 4)
Quarter: 2022Q3

REPORT INFORMATION
  Report Type: Report from Study
  Country: US (occurrence: US)
  Receive Date: 20220720
  Receipt Date: 20220929
  Transmission Date: 20221027
  Serious: Yes (Hospitalization, Other)
  Sender: FDA-Public Use
  Company Number: US-ABBVIE-22K-163-4474960-00

PATIENT
  Sex: Female
  Weight: 51.255 kg

DRUGS (15)
  1. IMBRUVICA [Suspect]
     Active Substance: IBRUTINIB
     Indication: Chronic lymphocytic leukaemia
     Route: 048
     Dates: start: 20181114, end: 20220613
  2. IMBRUVICA [Suspect]
     Active Substance: IBRUTINIB
     Indication: Chronic lymphocytic leukaemia
     Route: 048
     Dates: start: 20220627
  3. PREDNISONE [Concomitant]
     Active Substance: PREDNISONE
     Indication: Inflammation
     Route: 057
     Dates: start: 20220713
  4. PREDNISONE [Concomitant]
     Active Substance: PREDNISONE
     Indication: Inflammation
     Route: 057
     Dates: start: 20220713
  5. PREDNISONE [Concomitant]
     Active Substance: PREDNISONE
     Indication: Inflammation
     Route: 042
     Dates: start: 202208, end: 202208
  6. MORPHINE [Concomitant]
     Active Substance: MORPHINE
     Indication: Back pain
     Route: 042
     Dates: start: 202208, end: 202208
  7. CALCIUM [Concomitant]
     Active Substance: CALCIUM
     Indication: Osteoporosis
     Route: 048
  8. MAGNESIUM [Concomitant]
     Active Substance: MAGNESIUM
     Indication: Muscle spasms
  9. GABAPENTIN [Concomitant]
     Active Substance: GABAPENTIN
     Indication: Neck pain
     Route: 048
     Dates: start: 20220817
  10. ALPRAZOLAM [Concomitant]
     Active Substance: ALPRAZOLAM
     Indication: Anxiety
  11. MODERNA COVID-19 VACCINE [Concomitant]
     Active Substance: ELASOMERAN
     Indication: COVID-19 immunisation
     Dosage: MODERNA
     Dates: start: 2021, end: 2021
  12. MODERNA COVID-19 VACCINE [Concomitant]
     Active Substance: ELASOMERAN
     Indication: COVID-19 immunisation
     Dosage: MODERNA
     Route: 030
     Dates: start: 202109, end: 202109
  13. CLARITIN [Concomitant]
     Active Substance: LORATADINE
     Indication: Bone pain
  14. TYLENOL [Suspect]
     Active Substance: ACETAMINOPHEN
     Indication: Pain
     Dosage: 2000 TO 3000 MG A DAY
     Route: 048
     Dates: start: 2022, end: 202208
  15. PANTOPRAZOLE [Concomitant]
     Active Substance: PANTOPRAZOLE
     Indication: Epigastric discomfort

REACTIONS (54)
  - Cataract [Recovered/Resolved]
  - Cardiovascular disorder [Not Recovered/Not Resolved]
  - Emotional disorder [Not Recovered/Not Resolved]
  - Osteoporosis [Recovering/Resolving]
  - Contusion [Not Recovered/Not Resolved]
  - Joint range of motion decreased [Unknown]
  - Loss of personal independence in daily activities [Unknown]
  - Joint swelling [Unknown]
  - Peripheral swelling [Unknown]
  - Skin warm [Recovered/Resolved]
  - Impaired quality of life [Recovered/Resolved]
  - Vomiting [Recovered/Resolved]
  - Rash papular [Not Recovered/Not Resolved]
  - Abdominal distension [Recovered/Resolved]
  - Squamous cell carcinoma of skin [Recovered/Resolved]
  - Dermatitis [Unknown]
  - Wound [Not Recovered/Not Resolved]
  - Drug eruption [Unknown]
  - Hepatic enzyme increased [Recovered/Resolved]
  - Asthenia [Not Recovered/Not Resolved]
  - Arthralgia [Recovering/Resolving]
  - Erythema [Not Recovered/Not Resolved]
  - Reading disorder [Recovered/Resolved]
  - Rash [Not Recovered/Not Resolved]
  - Muscle spasms [Recovering/Resolving]
  - Stomatitis [Unknown]
  - Fatigue [Not Recovered/Not Resolved]
  - Pruritus [Unknown]
  - Vision blurred [Recovered/Resolved]
  - Raynaud^s phenomenon [Not Recovered/Not Resolved]
  - Inflammatory marker increased [Recovered/Resolved]
  - Memory impairment [Not Recovered/Not Resolved]
  - Seasonal allergy [Not Recovered/Not Resolved]
  - Oral blood blister [Not Recovered/Not Resolved]
  - Tongue blistering [Not Recovered/Not Resolved]
  - Pain in extremity [Not Recovered/Not Resolved]
  - Osteopenia [Not Recovered/Not Resolved]
  - Multiple organ dysfunction syndrome [Recovered/Resolved]
  - Meniere^s disease [Not Recovered/Not Resolved]
  - Muscle spasms [Recovering/Resolving]
  - Poor peripheral circulation [Not Recovered/Not Resolved]
  - Epigastric discomfort [Not Recovered/Not Resolved]
  - Skin cancer [Recovered/Resolved]
  - Pneumonia [Recovered/Resolved]
  - Muscle atrophy [Recovered/Resolved]
  - Gait disturbance [Recovering/Resolving]
  - Ocular vascular disorder [Recovered/Resolved]
  - Incorrect dose administered [Recovered/Resolved]
  - Basal cell carcinoma [Recovered/Resolved]
  - Weight decreased [Recovering/Resolving]
  - Myalgia [Recovering/Resolving]
  - Illness [Recovered/Resolved]
  - Cognitive disorder [Not Recovered/Not Resolved]
  - Bradyphrenia [Not Recovered/Not Resolved]

NARRATIVE: CASE EVENT DATE: 20170101
